FAERS Safety Report 12494869 (Version 1)
Quarter: 2016Q2

REPORT INFORMATION
  Report Type: Other
  Country: TR (occurrence: TR)
  Receive Date: 20160624
  Receipt Date: 20160624
  Transmission Date: 20160815
  Serious: Yes (Hospitalization)
  Sender: FDA-Public Use
  Company Number: TR-AJANTA PHARMA USA INC.-1054288

PATIENT
  Age: 4 Year
  Sex: Male

DRUGS (1)
  1. RISPERIDONE. [Suspect]
     Active Substance: RISPERIDONE
     Indication: OPPOSITIONAL DEFIANT DISORDER
     Route: 048

REACTIONS (6)
  - Cogwheel rigidity [Recovered/Resolved]
  - Toxicity to various agents [Recovered/Resolved]
  - Accidental overdose [Recovered/Resolved]
  - Dystonia [Recovered/Resolved]
  - Dysarthria [Recovered/Resolved]
  - Opisthotonus [Recovered/Resolved]

NARRATIVE: CASE EVENT DATE: 20160310
